FAERS Safety Report 10680648 (Version 2)
Quarter: 2015Q4

REPORT INFORMATION
  Report Type: Spontaneous
  Country: US (occurrence: US)
  Receive Date: 20141229
  Receipt Date: 20151228
  Transmission Date: 20160304
  Serious: Yes (Death, Hospitalization)
  Sender: FDA-Public Use
  Company Number: US-SA-2014SA118767

PATIENT
  Age: 47 Year
  Sex: Male

DRUGS (10)
  1. LASIX [Concomitant]
     Active Substance: FUROSEMIDE
  2. DOPAMINE [Concomitant]
     Active Substance: DOPAMINE\DOPAMINE HYDROCHLORIDE
  3. PHOSLO [Concomitant]
     Active Substance: CALCIUM ACETATE
  4. PLAVIX [Suspect]
     Active Substance: CLOPIDOGREL BISULFATE
     Indication: MYOCARDIAL INFARCTION
     Route: 048
     Dates: start: 20010625, end: 20040110
  5. INSULIN LISPRO [Concomitant]
     Active Substance: INSULIN LISPRO
  6. ASPIRIN. [Suspect]
     Active Substance: ASPIRIN
     Route: 065
  7. COREG [Concomitant]
     Active Substance: CARVEDILOL
  8. LEVOPHED [Concomitant]
     Active Substance: NOREPINEPHRINE BITARTRATE
  9. LESCOL [Concomitant]
     Active Substance: FLUVASTATIN SODIUM
  10. COUMADIN [Concomitant]
     Active Substance: WARFARIN SODIUM

REACTIONS (2)
  - Gastrointestinal haemorrhage [Fatal]
  - Haemorrhage [Fatal]

NARRATIVE: CASE EVENT DATE: 20040110
